FAERS Safety Report 9664811 (Version 1)
Quarter: 2013Q4

REPORT INFORMATION
  Report Type: Spontaneous
  Country: US (occurrence: US)
  Receive Date: 20131101
  Receipt Date: 20131101
  Transmission Date: 20140711
  Serious: No
  Sender: FDA-Public Use
  Company Number: US-GLAXOSMITHKLINE-A1035040A

PATIENT
  Sex: Female

DRUGS (5)
  1. RYTHMOL SR [Suspect]
     Indication: HEART RATE IRREGULAR
     Dosage: 225MG TWICE PER DAY
     Route: 048
  2. DIOVAN [Concomitant]
  3. LISINOPRIL [Concomitant]
  4. MULTIVITAMIN [Concomitant]
  5. ASPIRIN [Concomitant]

REACTIONS (2)
  - Palpitations [Recovered/Resolved]
  - Drug administration error [Recovered/Resolved]
